FAERS Safety Report 7018315-X (Version None)
Quarter: 2010Q3

REPORT INFORMATION
  Report Type: 
  Country: None (occurrence: None)
  Receive Date: 20100923
  Receipt Date: 20100920
  Transmission Date: 20110219
  Serious: Yes (Life-Threatening, Hospitalization, Other)
  Sender: FDA-Public Use
  Company Number: 2010SP046422

PATIENT
  Age: 35 Year
  Sex: Female

DRUGS (3)
  1. IMPLANON [Suspect]
     Indication: CONTRACEPTION
     Dosage: 68 MG SC
     Route: 058
     Dates: start: 20091117, end: 20100820
  2. XYZAL [Concomitant]
  3. VERAMYST [Concomitant]

REACTIONS (2)
  - MYOCARDIAL INFARCTION [None]
  - UPPER LIMB FRACTURE [None]
